FAERS Safety Report 5906840-1 (Version None)
Quarter: 2008Q3

REPORT INFORMATION
  Report Type: 
  Country: None (occurrence: None)
  Receive Date: 20080929
  Receipt Date: 20080922
  Transmission Date: 20090109
  Serious: Yes (Hospitalization)
  Sender: FDA-Public Use
  Company Number: 2008AL008767

PATIENT
  Age: 83 Year
  Sex: Male
  Weight: 79.3795 kg

DRUGS (34)
  1. DIGOXIN [Suspect]
     Dosage: 0.125MG, PO
     Route: 048
     Dates: start: 20050101, end: 20080101
  2. COUMADIN [Concomitant]
  3. LASIX [Concomitant]
  4. POTASSIUM CHLORIDE [Concomitant]
  5. ATENOLOL [Concomitant]
  6. AMBIEN [Concomitant]
  7. GABAPENTIN [Concomitant]
  8. KLOR-CON [Concomitant]
  9. FLOMAX [Concomitant]
  10. FUROSEMIDE [Concomitant]
  11. WARFARIN SODIUM [Concomitant]
  12. FLOVENT [Concomitant]
  13. CLOBETAOL [Concomitant]
  14. HYDROCO [Concomitant]
  15. TRIAMCINOLONE [Concomitant]
  16. AMOXICILLIN [Concomitant]
  17. METHYLPRED [Concomitant]
  18. RANITIDINE [Concomitant]
  19. COLCHICINE [Concomitant]
  20. TRAMADOL HCL [Concomitant]
  21. PREDNISONE TAB [Concomitant]
  22. ATROVENT [Concomitant]
  23. PROAIR HFA [Concomitant]
  24. CARAC [Concomitant]
  25. CIPROFLOXACIN [Concomitant]
  26. MUPIROCIN [Concomitant]
  27. CLINDAMYCIN HCL [Concomitant]
  28. FLUOCINODIDE [Concomitant]
  29. HYDROXYZ [Concomitant]
  30. AMOXICILLIN [Concomitant]
  31. ZOLPIDEM [Concomitant]
  32. LOVENOX [Concomitant]
  33. IPRATROPIUM BROMIDE [Concomitant]
  34. ALBUTEROL [Concomitant]

REACTIONS (16)
  - ABSCESS LIMB [None]
  - BACTERIAL INFECTION [None]
  - CELLULITIS [None]
  - CONTUSION [None]
  - DECUBITUS ULCER [None]
  - DIZZINESS [None]
  - EXCORIATION [None]
  - FALL [None]
  - LACERATION [None]
  - LIMB INJURY [None]
  - NAUSEA [None]
  - PAIN [None]
  - PALPITATIONS [None]
  - RASH [None]
  - SWELLING [None]
  - WALKING AID USER [None]
